FAERS Safety Report 4599643-4 (Version None)
Quarter: 2005Q1

REPORT INFORMATION
  Report Type: 
  Country: None (occurrence: None)
  Receive Date: 20050303
  Receipt Date: 20050217
  Transmission Date: 20050727
  Serious: Yes (Death)
  Sender: FDA-Public Use
  Company Number: 2005-00328

PATIENT
  Age: 72 Year
  Sex: Female

DRUGS (1)
  1. INTEGRILIN [Suspect]
     Dates: start: 20030101, end: 20030101

REACTIONS (1)
  - CORONARY ARTERY SURGERY [None]
